FAERS Safety Report 18330563 (Version 2)
Quarter: 2020Q4

REPORT INFORMATION
  Report Type: Spontaneous
  Country: IT (occurrence: IT)
  Receive Date: 20200930
  Receipt Date: 20201028
  Transmission Date: 20210113
  Serious: Yes (Hospitalization)
  Sender: FDA-Public Use
  Company Number: IT-TEVA-2020-IT-1832923

PATIENT
  Age: 54 Year
  Sex: Female

DRUGS (2)
  1. ALPRAZOLAM. [Suspect]
     Active Substance: ALPRAZOLAM
     Indication: SCHIZOAFFECTIVE DISORDER
     Route: 065
  2. LORAZEPAM. [Suspect]
     Active Substance: LORAZEPAM
     Indication: SCHIZOAFFECTIVE DISORDER
     Route: 065

REACTIONS (4)
  - Drug withdrawal syndrome [Recovering/Resolving]
  - Loss of consciousness [Recovered/Resolved]
  - Stress cardiomyopathy [Recovering/Resolving]
  - Status epilepticus [Recovered/Resolved]
